FAERS Safety Report 9294235 (Version 1)
Quarter: 2013Q2

REPORT INFORMATION
  Report Type: Spontaneous
  Country: US (occurrence: US)
  Receive Date: 20130516
  Receipt Date: 20130516
  Transmission Date: 20140414
  Serious: Yes (Hospitalization)
  Sender: FDA-Public Use
  Company Number: US-EISAI INC-E2080-00625-SPO-US

PATIENT
  Age: 10 Year
  Sex: Male

DRUGS (3)
  1. RUFINAMIDE [Suspect]
     Indication: CONVULSION
     Route: 048
  2. LEVETIRACETAM [Concomitant]
     Indication: CONVULSION
     Dosage: UNKNOWN
     Dates: start: 2006
  3. TOPIRAMATE [Concomitant]
     Indication: CONVULSION
     Dosage: UNKNOWN
     Dates: start: 2006

REACTIONS (1)
  - Drug reaction with eosinophilia and systemic symptoms [Recovered/Resolved]
